FAERS Safety Report 13362583 (Version 2)
Quarter: 2018Q4

REPORT INFORMATION
  Report Type: Spontaneous
  Country: US (occurrence: US)
  Receive Date: 20170323
  Receipt Date: 20181108
  Transmission Date: 20190204
  Serious: No
  Sender: FDA-Public Use
  Company Number: US-PFIZER INC-2017126371

PATIENT
  Age: 57 Year
  Sex: Female

DRUGS (1)
  1. SKELAXIN [Suspect]
     Active Substance: METAXALONE
     Dosage: 800 MG, 4X/DAY

REACTIONS (3)
  - Pre-existing condition improved [Unknown]
  - Headache [Unknown]
  - Therapeutic response unexpected [Unknown]
